FAERS Safety Report 14124132 (Version 10)
Quarter: 2018Q1

REPORT INFORMATION
  Report Type: Report from Study
  Country: US (occurrence: US)
  Receive Date: 20171025
  Receipt Date: 20180209
  Transmission Date: 20180508
  Serious: Yes (Other)
  Sender: FDA-Public Use
  Company Number: PHEH2017US034310

PATIENT
  Sex: Female

DRUGS (6)
  1. DIAMOX SEQUELS [Suspect]
     Active Substance: ACETAZOLAMIDE
     Indication: OPEN ANGLE GLAUCOMA
     Route: 065
  2. TIMOLOL. [Suspect]
     Active Substance: TIMOLOL
     Dosage: BID (OU)
     Route: 047
  3. LUMIGAN [Suspect]
     Active Substance: BIMATOPROST
     Indication: OPEN ANGLE GLAUCOMA
     Dosage: 1 GTT, QHS (BOTH EYES)
     Route: 047
     Dates: start: 20170317
  4. SIMBRINZA [Suspect]
     Active Substance: BRIMONIDINE TARTRATE\BRINZOLAMIDE
     Indication: OPEN ANGLE GLAUCOMA
     Dosage: BID (OU)
     Route: 065
  5. TIMOLOL. [Suspect]
     Active Substance: TIMOLOL
     Indication: OPEN ANGLE GLAUCOMA
     Dosage: 1 GTT, BOTH EYES, EVERY MORNING
     Route: 047
     Dates: start: 20170317
  6. ACETAZOLAMIDE. [Suspect]
     Active Substance: ACETAZOLAMIDE
     Indication: OPEN ANGLE GLAUCOMA
     Dosage: 1 DF, BID
     Route: 048
     Dates: start: 20170317

REACTIONS (8)
  - Iris adhesions [Unknown]
  - Optic nerve cupping [Unknown]
  - Anterior chamber angle neovascularisation [Unknown]
  - Foreign body in eye [Unknown]
  - Retinal pigmentation [Unknown]
  - Retinal disorder [Unknown]
  - Iris neovascularisation [Unknown]
  - Intraocular pressure increased [Recovering/Resolving]
